FAERS Safety Report 5120195-4 (Version None)
Quarter: 2006Q4

REPORT INFORMATION
  Report Type: 
  Country: None (occurrence: None)
  Receive Date: 20061002
  Receipt Date: 20061002
  Transmission Date: 20070319
  Serious: Yes (Life-Threatening, Disabling)
  Sender: FDA-Public Use
  Company Number: None

PATIENT
  Sex: Female
  Weight: 63.5036 kg

DRUGS (2)
  1. VERSED [Suspect]
     Indication: OESOPHAGOGASTRODUODENOSCOPY
     Dosage: SEE IMAGE
     Route: 042
     Dates: start: 20060314
  2. DEMEROL [Concomitant]

REACTIONS (3)
  - DYSARTHRIA [None]
  - MEDICATION ERROR [None]
  - OVERDOSE [None]
